FAERS Safety Report 18076642 (Version 1)
Quarter: 2020Q3

REPORT INFORMATION
  Report Type: Spontaneous
  Country: US (occurrence: US)
  Receive Date: 20200727
  Receipt Date: 20200727
  Transmission Date: 20201103
  Serious: Yes (Death, Hospitalization, Other)
  Sender: FDA-Public Use
  Company Number: US-CASPER PHARMA LLC-2020CAS000370

PATIENT
  Age: 67 Year
  Sex: Male

DRUGS (2)
  1. BISMUTH, METRONIDAZOLE, TETRACYCLIN [Suspect]
     Active Substance: BISMUTH SUBSALICYLATE\METRONIDAZOLE\TETRACYCLINE HYDROCHLORIDE
     Indication: PNEUMONIA ASPIRATION
     Dosage: 500 MILLIGRAM, QID
     Route: 065
  2. AMOXICILLIN. [Concomitant]
     Active Substance: AMOXICILLIN
     Indication: PNEUMONIA ASPIRATION
     Dosage: UNK
     Route: 065

REACTIONS (1)
  - Toxic encephalopathy [Fatal]
